FAERS Safety Report 20584584 (Version 2)
Quarter: 2022Q1

REPORT INFORMATION
  Report Type: Spontaneous
  Country: JP (occurrence: JP)
  Receive Date: 20220311
  Receipt Date: 20220315
  Transmission Date: 20220423
  Serious: Yes (Hospitalization, Congenital Anomaly, Other)
  Sender: FDA-Public Use
  Company Number: JP-NOVARTISPH-NVSJ2022JP004132

PATIENT

DRUGS (1)
  1. AMOXICILLIN [Suspect]
     Active Substance: AMOXICILLIN
     Indication: Foetal exposure during pregnancy
     Route: 064

REACTIONS (4)
  - Premature baby [Unknown]
  - Congenital syphilis [Unknown]
  - Patent ductus arteriosus [Unknown]
  - Foetal exposure during pregnancy [Unknown]
